FAERS Safety Report 21637689 (Version 2)
Quarter: 2023Q1

REPORT INFORMATION
  Report Type: Spontaneous
  Country: CA (occurrence: CA)
  Receive Date: 20221124
  Receipt Date: 20230329
  Transmission Date: 20230418
  Serious: Yes (Hospitalization, Other)
  Sender: FDA-Public Use
  Company Number: CA-SAMSUNG BIOEPIS-SB-2022-29544

PATIENT
  Age: 65 Year
  Sex: Female
  Weight: 53 kg

DRUGS (8)
  1. INFLIXIMAB [Suspect]
     Active Substance: INFLIXIMAB
     Indication: Crohn^s disease
     Route: 042
  2. INFLIXIMAB [Suspect]
     Active Substance: INFLIXIMAB
     Route: 042
  3. INFLIXIMAB [Suspect]
     Active Substance: INFLIXIMAB
     Route: 042
  4. INFLIXIMAB [Suspect]
     Active Substance: INFLIXIMAB
     Route: 042
  5. INFLIXIMAB [Suspect]
     Active Substance: INFLIXIMAB
     Route: 042
  6. OXYCODONE [Concomitant]
     Active Substance: OXYCODONE
     Indication: Back pain
     Route: 065
  7. PREDNISONE [Concomitant]
     Active Substance: PREDNISONE
     Indication: Product used for unknown indication
     Route: 065
  8. SODIUM PHOSPHATE [Concomitant]
     Active Substance: SODIUM PHOSPHATE
     Indication: Product used for unknown indication
     Route: 065

REACTIONS (13)
  - Aphthous ulcer [Not Recovered/Not Resolved]
  - C-reactive protein increased [Not Recovered/Not Resolved]
  - Condition aggravated [Recovered/Resolved]
  - Erythema [Not Recovered/Not Resolved]
  - Fatigue [Not Recovered/Not Resolved]
  - Feeding disorder [Not Recovered/Not Resolved]
  - Gait disturbance [Not Recovered/Not Resolved]
  - Pain in extremity [Not Recovered/Not Resolved]
  - Pain in jaw [Not Recovered/Not Resolved]
  - Pneumonia aspiration [Not Recovered/Not Resolved]
  - Weight decreased [Not Recovered/Not Resolved]
  - Drug level decreased [Not Recovered/Not Resolved]
  - Off label use [Not Recovered/Not Resolved]
